FAERS Safety Report 5231249-6 (Version None)
Quarter: 2007Q1

REPORT INFORMATION
  Report Type: 
  Country: None (occurrence: None)
  Receive Date: 20070206
  Receipt Date: 20070130
  Transmission Date: 20070707
  Serious: Yes (Hospitalization)
  Sender: FDA-Public Use
  Company Number: 2007CG00182

PATIENT
  Age: 67 Year
  Sex: Male
  Weight: 130 kg

DRUGS (5)
  1. HYTACAND [Suspect]
     Route: 048
     Dates: start: 20020101
  2. DIOSMIN [Suspect]
     Route: 048
     Dates: start: 20060101
  3. INIPOMP [Suspect]
     Route: 048
     Dates: start: 20060101
  4. AVANDAMET [Suspect]
     Route: 048
     Dates: start: 20060701, end: 20070115
  5. ALFUZOSIN HYDROCHLORIDE [Suspect]
     Route: 048
     Dates: start: 20060101

REACTIONS (2)
  - BUNDLE BRANCH BLOCK LEFT [None]
  - CARDIAC FAILURE [None]
